FAERS Safety Report 17845982 (Version 1)
Quarter: 2020Q3

REPORT INFORMATION
  Report Type: Spontaneous
  Country: US (occurrence: US)
  Receive Date: 20200531
  Receipt Date: 20200531
  Transmission Date: 20201105
  Serious: Yes (Life-Threatening)
  Sender: FDA-Public Use
  Company Number: None

PATIENT
  Age: 50 Year
  Sex: Male
  Weight: 72 kg

DRUGS (3)
  1. HYOSCYAMINE. [Suspect]
     Active Substance: HYOSCYAMINE
     Indication: GASTRIC PH DECREASED
     Dosage: ?          QUANTITY:60 CAPSULE(S);?
     Route: 060
     Dates: start: 20200514, end: 20200531
  2. TPN [Concomitant]
     Active Substance: AMINO ACIDS\DEXTROSE\ELECTROLYTES NOS\SOYBEAN OIL
  3. TYLENOL [Concomitant]
     Active Substance: ACETAMINOPHEN

REACTIONS (5)
  - Agitation [None]
  - Anxiety [None]
  - Restlessness [None]
  - Adverse drug reaction [None]
  - Confusional state [None]

NARRATIVE: CASE EVENT DATE: 20200531
